FAERS Safety Report 5421686-9 (Version None)
Quarter: 2007Q3

REPORT INFORMATION
  Report Type: 
  Country: None (occurrence: None)
  Receive Date: 20070821
  Receipt Date: 20070816
  Transmission Date: 20080115
  Serious: Yes (Hospitalization, Other)
  Sender: FDA-Public Use
  Company Number: US-MERCK-0704USA04326

PATIENT
  Age: 47 Year
  Sex: Female
  Weight: 62 kg

DRUGS (9)
  1. FOSAMAX [Suspect]
     Indication: OSTEOPOROSIS
     Route: 048
     Dates: start: 20031001
  2. SYNTHROID [Concomitant]
     Route: 048
  3. VIVELLE [Concomitant]
     Route: 061
  4. CALTRATE + D [Concomitant]
     Route: 048
  5. HYDROCHLOROTHIAZIDE [Concomitant]
     Indication: FLUID RETENTION
     Route: 065
  6. VIOXX [Concomitant]
     Route: 048
  7. VITAMIN E [Concomitant]
     Route: 065
  8. CELESTONE TAB [Concomitant]
     Indication: SEASONAL ALLERGY
     Route: 065
     Dates: start: 19840101
  9. MIACALCIN [Concomitant]
     Indication: PAIN
     Dates: start: 20030901

REACTIONS (18)
  - ANXIETY [None]
  - BONE DISORDER [None]
  - CONSTIPATION [None]
  - DEPRESSION [None]
  - EATING DISORDER [None]
  - FATIGUE [None]
  - FEELING ABNORMAL [None]
  - HEADACHE [None]
  - KYPHOSIS [None]
  - NEPHROLITHIASIS [None]
  - OSTEOARTHRITIS [None]
  - OSTEONECROSIS [None]
  - PAIN [None]
  - RENAL CYST [None]
  - SCOLIOSIS [None]
  - SPEECH DISORDER [None]
  - SPINAL HAEMANGIOMA [None]
  - THROAT IRRITATION [None]
